FAERS Safety Report 6132206-8 (Version None)
Quarter: 2009Q1

REPORT INFORMATION
  Report Type: 
  Country: None (occurrence: None)
  Receive Date: 20090325
  Receipt Date: 20090313
  Transmission Date: 20090719
  Serious: Yes (Other)
  Sender: FDA-Public Use
  Company Number: BR-ROCHE-621734

PATIENT
  Sex: Female
  Weight: 65 kg

DRUGS (4)
  1. BONIVA [Suspect]
     Indication: OSTEOPENIA
     Route: 048
     Dates: start: 20090213, end: 20090213
  2. CLORANA [Suspect]
     Route: 048
     Dates: start: 20090311, end: 20090312
  3. OSCAL [Concomitant]
     Indication: OSTEOPENIA
     Dosage: DRUG: OSCAL D
     Route: 048
     Dates: start: 20060101
  4. CALCAREA CARB [Concomitant]
     Indication: OSTEOPENIA
     Dosage: DOSE: 30 D (DROPS), DRUG REPORTED: CALCAREA CARBONICA
     Route: 048

REACTIONS (5)
  - BLOOD POTASSIUM DECREASED [None]
  - FATIGUE [None]
  - SYNCOPE [None]
  - URINARY RETENTION [None]
  - WEIGHT INCREASED [None]
